FAERS Safety Report 7634609-9 (Version None)
Quarter: 2011Q3

REPORT INFORMATION
  Report Type: 
  Country: None (occurrence: None)
  Receive Date: 20110725
  Receipt Date: 20110531
  Transmission Date: 20111222
  Serious: Yes (Other)
  Sender: FDA-Public Use
  Company Number: JP-GENENTECH-315961

PATIENT
  Sex: Male

DRUGS (6)
  1. RITUXAN [Suspect]
     Indication: NON-HODGKIN'S LYMPHOMA
     Dosage: 660 MG/ML, Q3W
     Route: 042
     Dates: start: 20110228
  2. CYCLOPHOSPHAMIDE [Concomitant]
     Indication: MANTLE CELL LYMPHOMA
     Dosage: 880 MG, QD
     Route: 042
     Dates: start: 20110217, end: 20110224
  3. PREDNISOLONE [Concomitant]
     Indication: MANTLE CELL LYMPHOMA
     Dosage: 100 MG, UNK
     Route: 048
     Dates: start: 20110217, end: 20110228
  4. DEXAMETHASONE [Concomitant]
     Indication: MANTLE CELL LYMPHOMA
     Dosage: 10 MG, QD
     Dates: start: 20110219
  5. GRANISETRON [Concomitant]
     Indication: PRODUCT USED FOR UNKNOWN INDICATION
     Dosage: 3 MG, QD
     Route: 042
     Dates: start: 20110217, end: 20110217
  6. VINCRISTINE [Concomitant]
     Indication: MANTLE CELL LYMPHOMA
     Dosage: 2 MG, QD
     Route: 042
     Dates: start: 20110217, end: 20110224

REACTIONS (3)
  - SINUS BRADYCARDIA [None]
  - ALTERED STATE OF CONSCIOUSNESS [None]
  - BLOOD PRESSURE DECREASED [None]
